FAERS Safety Report 8299315-9 (Version None)
Quarter: 2012Q2

REPORT INFORMATION
  Report Type: 
  Country: None (occurrence: None)
  Receive Date: 20120419
  Receipt Date: 20120411
  Transmission Date: 20120825
  Serious: Yes (Other)
  Sender: FDA-Public Use
  Company Number: US-ABBOTT-12P-163-0924665-00

PATIENT
  Age: 65 Year
  Sex: Female

DRUGS (4)
  1. ACTONEL [Concomitant]
     Indication: OSTEOPENIA
     Route: 048
  2. HUMIRA [Suspect]
     Indication: RHEUMATOID ARTHRITIS
     Dates: start: 20111205, end: 20120328
  3. CITALOPRAM [Concomitant]
     Indication: DEPRESSION
     Dosage: 1/2 TAB DAILY
     Route: 048
  4. CYCLOBENZAPRINE HYDROCHLORIDE [Concomitant]
     Indication: BACK PAIN

REACTIONS (2)
  - PAIN [None]
  - DENTAL CARIES [None]
